FAERS Safety Report 4364830-7 (Version None)
Quarter: 2004Q2

REPORT INFORMATION
  Report Type: 
  Country: None (occurrence: None)
  Receive Date: 20040526
  Receipt Date: 20040317
  Transmission Date: 20050107
  Serious: No
  Sender: FDA-Public Use
  Company Number: US-GLAXOSMITHKLINE-A0503737A

PATIENT
  Age: 47 Day
  Sex: Male

DRUGS (8)
  1. LOTRONEX [Suspect]
     Indication: IRRITABLE BOWEL SYNDROME
     Route: 048
     Dates: end: 20001205
  2. PREMPHASE 14/14 [Concomitant]
  3. CELEXA [Concomitant]
  4. CELEXA [Concomitant]
  5. PREVACID [Concomitant]
  6. CELEBREX [Concomitant]
  7. PROPULSID [Concomitant]
  8. ACIPHEX [Concomitant]

REACTIONS (1)
  - ADVERSE EVENT [None]
